FAERS Safety Report 20307733 (Version 6)
Quarter: 2023Q2

REPORT INFORMATION
  Report Type: Report from Study
  Country: CO (occurrence: CO)
  Receive Date: 20220107
  Receipt Date: 20230612
  Transmission Date: 20230721
  Serious: Yes (Hospitalization)
  Sender: FDA-Public Use
  Company Number: CO-JNJFOC-20211228885

PATIENT
  Age: 60 Year
  Sex: Male
  Weight: 82 kg

DRUGS (2)
  1. SIMPONI [Suspect]
     Active Substance: GOLIMUMAB
     Indication: Rheumatoid arthritis
     Dosage: 50 MG/ 0.5 ML
     Route: 058
     Dates: start: 20190118, end: 20211230
  2. ALBUTEROL [Concomitant]
     Active Substance: ALBUTEROL
     Route: 045

REACTIONS (3)
  - Pulmonary thrombosis [Not Recovered/Not Resolved]
  - Chronic obstructive pulmonary disease [Unknown]
  - Influenza [Not Recovered/Not Resolved]

NARRATIVE: CASE EVENT DATE: 20211201
